FAERS Safety Report 5097055-0 (Version None)
Quarter: 2006Q3

REPORT INFORMATION
  Report Type: 
  Country: None (occurrence: None)
  Receive Date: 20060906
  Receipt Date: 20060720
  Transmission Date: 20061208
  Serious: Yes (Other)
  Sender: FDA-Public Use
  Company Number: PHBS2006JP11003

PATIENT
  Age: 56 Year
  Sex: Male

DRUGS (2)
  1. VOLTAREN [Suspect]
     Indication: UPPER RESPIRATORY TRACT INFLAMMATION
     Dosage: 50 MG/DAY
     Route: 048
     Dates: start: 20060715, end: 20060718
  2. AZITHROMYCIN [Suspect]
     Dosage: 250 MG/DAY
     Route: 048
     Dates: start: 20060715, end: 20060718

REACTIONS (1)
  - DEPRESSED LEVEL OF CONSCIOUSNESS [None]
